FAERS Safety Report 10800871 (Version 2)
Quarter: 2015Q1

REPORT INFORMATION
  Report Type: Spontaneous
  Country: US (occurrence: US)
  Receive Date: 20150216
  Receipt Date: 20150216
  Transmission Date: 20150721
  Serious: No
  Sender: FDA-Public Use
  Company Number: US-ALLERGAN-1426538US

PATIENT
  Sex: Female

DRUGS (4)
  1. RESTASIS [Suspect]
     Active Substance: CYCLOSPORINE
     Indication: RHEUMATOID ARTHRITIS
     Dosage: 2 GTT, BID
     Route: 047
     Dates: start: 20141225
  2. TIMOLOL [Concomitant]
     Active Substance: TIMOLOL
     Dosage: UNK
  3. XALATAN [Concomitant]
     Active Substance: LATANOPROST
     Dosage: UNK
  4. RESTASIS [Suspect]
     Active Substance: CYCLOSPORINE
     Indication: DRY EYE

REACTIONS (1)
  - Eye irritation [Unknown]
